FAERS Safety Report 13808500 (Version 4)
Quarter: 2018Q1

REPORT INFORMATION
  Report Type: Report from Study
  Country: FR (occurrence: FR)
  Receive Date: 20170728
  Receipt Date: 20180109
  Transmission Date: 20180508
  Serious: Yes (Hospitalization)
  Sender: FDA-Public Use
  Company Number: PHHO2017FR010855

PATIENT
  Age: 45 Year
  Sex: Male
  Weight: 94 kg

DRUGS (6)
  1. PREDNISONE. [Suspect]
     Active Substance: PREDNISONE
     Indication: RENAL TRANSPLANT
     Dosage: 5 MG, QD (EACH MORNING)
     Route: 048
     Dates: start: 20161005
  2. MYCOPHENOLIC ACID. [Suspect]
     Active Substance: MYCOPHENOLIC ACID
     Indication: RENAL TRANSPLANT
     Dosage: 1080 MG, BID
     Route: 048
     Dates: start: 20160922
  3. NEORAL [Suspect]
     Active Substance: CYCLOSPORINE
     Dosage: 150 MG, BID
     Route: 048
     Dates: start: 20161012
  4. NEORAL [Suspect]
     Active Substance: CYCLOSPORINE
     Dosage: 100 MG, BID
     Route: 048
     Dates: start: 20161013
  5. SDZ CHI 621 [Suspect]
     Active Substance: BASILIXIMAB
     Indication: RENAL TRANSPLANT
     Dosage: UNK
     Route: 042
     Dates: start: 20161005
  6. NEORAL [Suspect]
     Active Substance: CYCLOSPORINE
     Indication: RENAL TRANSPLANT
     Dosage: 225 MG, BID
     Route: 048
     Dates: start: 20161005, end: 20161011

REACTIONS (3)
  - Acute kidney injury [Recovered/Resolved]
  - Pyrexia [Recovered/Resolved]
  - Cough [Recovered/Resolved]

NARRATIVE: CASE EVENT DATE: 20161010
